FAERS Safety Report 9260631 (Version 1)
Quarter: 2013Q2

REPORT INFORMATION
  Report Type: Spontaneous
  Country: US (occurrence: US)
  Receive Date: 20130429
  Receipt Date: 20130429
  Transmission Date: 20140414
  Serious: Yes (Hospitalization)
  Sender: FDA-Public Use
  Company Number: US-ROXANE LABORATORIES, INC.-2013-RO-00641RO

PATIENT
  Age: 85 Year
  Sex: Male

DRUGS (3)
  1. MEGESTROL ACETATE [Suspect]
     Indication: DECREASED APPETITE
     Route: 048
     Dates: start: 201208, end: 20120905
  2. MEGESTROL ACETATE [Suspect]
     Indication: WEIGHT DECREASED
  3. LIPITOR [Concomitant]
     Indication: BLOOD CHOLESTEROL INCREASED
     Dates: end: 20120905

REACTIONS (3)
  - Hypotonia [Recovered/Resolved]
  - Renal impairment [Recovered/Resolved]
  - Drug ineffective for unapproved indication [Recovered/Resolved]
